FAERS Safety Report 9608625 (Version 3)
Quarter: 2014Q1

REPORT INFORMATION
  Report Type: Spontaneous
  Country: US (occurrence: US)
  Receive Date: 20131009
  Receipt Date: 20140204
  Transmission Date: 20141002
  Serious: Yes (Other)
  Sender: FDA-Public Use
  Company Number: US-ROCHE-1262780

PATIENT
  Age: 58 Year
  Sex: Female

DRUGS (13)
  1. XOLAIR [Suspect]
     Indication: ASTHMA
     Dosage: TOTAL 375 MG
     Route: 058
     Dates: start: 20130807, end: 20131003
  2. XOLAIR [Suspect]
     Indication: BLOOD IMMUNOGLOBULIN E INCREASED
     Dosage: TOTAL 300 MG
     Route: 058
     Dates: start: 20120716
  3. CROMOLYN SODIUM [Concomitant]
     Indication: ASTHMA
     Dosage: 20MG/2ML, NEB
     Route: 065
  4. SINGULAIR [Concomitant]
     Indication: ASTHMA
     Route: 048
  5. SYMBICORT [Concomitant]
     Indication: ASTHMA
     Dosage: 160/4.5 MCG
     Route: 065
  6. LOSARTAN [Concomitant]
     Route: 048
  7. AMLODIPINE BESYLATE [Concomitant]
     Route: 048
  8. SIMVASTATIN [Concomitant]
     Route: 048
  9. TRAZODONE [Concomitant]
     Route: 048
  10. RANITIDINE [Concomitant]
     Route: 048
  11. ASPIRIN [Concomitant]
     Route: 048
  12. ATROVENT [Concomitant]
     Dosage: 2-4 HOURS
     Route: 065
  13. PREDNISONE [Concomitant]

REACTIONS (7)
  - Dizziness [Unknown]
  - Laryngeal oedema [Unknown]
  - Throat tightness [Unknown]
  - Dysphonia [Unknown]
  - Fatigue [Unknown]
  - Wheezing [Unknown]
  - Blood pressure decreased [Unknown]
